FAERS Safety Report 24187638 (Version 3)
Quarter: 2024Q4

REPORT INFORMATION
  Report Type: Spontaneous
  Country: US (occurrence: US)
  Receive Date: 20240808
  Receipt Date: 20241118
  Transmission Date: 20250114
  Serious: Yes (Other)
  Sender: SANOFI AVENTIS
  Company Number: US-SA-SAC20240805000254

PATIENT
  Age: 35 Year
  Sex: Female

DRUGS (1)
  1. DUPIXENT [Suspect]
     Active Substance: DUPILUMAB
     Indication: Asthma
     Dosage: 200 MG, QOW
     Route: 058
     Dates: start: 20240719

REACTIONS (4)
  - Laryngeal stenosis [Unknown]
  - Asthma [Recovering/Resolving]
  - Impaired quality of life [Unknown]
  - Surgery [Unknown]

NARRATIVE: CASE EVENT DATE: 20240101
